FAERS Safety Report 23428601 (Version 6)
Quarter: 2024Q1

REPORT INFORMATION
  Report Type: Spontaneous
  Country: US (occurrence: US)
  Receive Date: 20240122
  Receipt Date: 20240326
  Transmission Date: 20240410
  Serious: Yes (Other)
  Sender: FDA-Public Use
  Company Number: US-REGENERON PHARMACEUTICALS, INC.-2024-018276

PATIENT
  Sex: Female

DRUGS (3)
  1. EYLEA HD [Suspect]
     Active Substance: AFLIBERCEPT
     Indication: Macular oedema
     Dosage: UNK, RIGHT EYE, FORMULATION: HD VIAL SAMPLE
     Route: 031
     Dates: start: 20240105, end: 20240105
  2. EYLEA HD [Suspect]
     Active Substance: AFLIBERCEPT
     Indication: Retinal vein occlusion
  3. GABAPENTIN [Concomitant]
     Active Substance: GABAPENTIN
     Indication: Pain
     Dosage: LOW DOSE

REACTIONS (9)
  - Retinal vein occlusion [Unknown]
  - Macular oedema [Unknown]
  - Blindness transient [Recovered/Resolved]
  - Condition aggravated [Unknown]
  - Retinal occlusive vasculitis [Unknown]
  - Eye inflammation [Unknown]
  - Vision blurred [Not Recovered/Not Resolved]
  - Adverse drug reaction [Unknown]
  - Off label use [Unknown]

NARRATIVE: CASE EVENT DATE: 20240101
